FAERS Safety Report 5519054-4 (Version None)
Quarter: 2007Q4

REPORT INFORMATION
  Report Type: 
  Country: None (occurrence: None)
  Receive Date: 20071114
  Receipt Date: 20071114
  Transmission Date: 20080405
  Serious: No
  Sender: FDA-Public Use
  Company Number: None

PATIENT
  Age: 69 Year
  Sex: Female

DRUGS (2)
  1. BACLOFEN [Suspect]
     Dosage: TABLET
  2. BACLOFEN [Suspect]
     Dosage: TABLET

REACTIONS (8)
  - BALANCE DISORDER [None]
  - DRUG DISPENSING ERROR [None]
  - FALL [None]
  - HALLUCINATION [None]
  - INJURY [None]
  - NERVOUS SYSTEM DISORDER [None]
  - OVERDOSE [None]
  - THERAPEUTIC AGENT TOXICITY [None]
